FAERS Safety Report 10083291 (Version 1)
Quarter: 2014Q2

REPORT INFORMATION
  Report Type: Report from Study
  Country: CA (occurrence: CA)
  Receive Date: 20140417
  Receipt Date: 20140417
  Transmission Date: 20141212
  Serious: Yes (Hospitalization)
  Sender: FDA-Public Use
  Company Number: CA-ROCHE-1378478

PATIENT
  Age: 55 Year
  Sex: Female

DRUGS (14)
  1. BEVACIZUMAB [Suspect]
     Indication: PRODUCT USED FOR UNKNOWN INDICATION
     Route: 042
  2. BEVACIZUMAB [Suspect]
     Dosage: THERAPY DURATION: 1.0 DAYS
     Route: 042
  3. TRASTUZUMAB [Suspect]
     Indication: PRODUCT USED FOR UNKNOWN INDICATION
     Route: 042
  4. TRASTUZUMAB [Suspect]
     Dosage: THERAPY DURATION: 1.0 DAYS
     Route: 042
  5. CARBOPLATIN [Suspect]
     Indication: PRODUCT USED FOR UNKNOWN INDICATION
     Route: 042
  6. CARBOPLATIN [Suspect]
     Dosage: THERAPY DURATION  1.0 DAYS
     Route: 042
  7. DOCETAXEL [Suspect]
     Indication: PRODUCT USED FOR UNKNOWN INDICATION
     Dosage: THERAPY DURATION 1.0 DAY
     Route: 042
  8. DOCETAXEL [Suspect]
     Route: 042
  9. AVAPRO [Concomitant]
     Route: 065
  10. BROMPHENIRAMINE [Concomitant]
  11. PHENYLEPHRINE [Concomitant]
  12. PHENYLPROPANOLAMINE [Concomitant]
  13. GRAVOL [Concomitant]
     Route: 065
  14. LOPERAMIDE [Concomitant]
     Route: 065

REACTIONS (7)
  - Clostridium difficile infection [Recovered/Resolved]
  - Dehydration [Recovered/Resolved]
  - Diarrhoea [Recovered/Resolved]
  - Hypovolaemia [Recovered/Resolved]
  - Mucosal inflammation [Recovered/Resolved]
  - Palmar-plantar erythrodysaesthesia syndrome [Recovered/Resolved]
  - Renal failure acute [Recovered/Resolved]
